FAERS Safety Report 23292404 (Version 2)
Quarter: 2023Q4

REPORT INFORMATION
  Report Type: Other
  Country: None (occurrence: IT)
  Receive Date: 20231213
  Receipt Date: 20231213
  Transmission Date: 20240109
  Serious: Yes (Death, Hospitalization)
  Sender: FDA-Public Use
  Company Number: IT-B.Braun Medical Inc.-2149291

PATIENT
  Age: 17 Year
  Sex: Female
  Weight: 56 kg

DRUGS (12)
  1. ACETAMINOPHEN [Suspect]
     Active Substance: ACETAMINOPHEN
     Indication: Ewing^s sarcoma
  2. CLOZAPINE [Suspect]
     Active Substance: CLOZAPINE
  3. COTRIMOXAZOLE [Suspect]
     Active Substance: SULFAMETHOXAZOLE\TRIMETHOPRIM
  4. CLONIDINE [Suspect]
     Active Substance: CLONIDINE
  5. DEXAMETHASONE [Suspect]
     Active Substance: DEXAMETHASONE
  6. DULOXETINE [Suspect]
     Active Substance: DULOXETINE
  7. FENTANYL [Suspect]
     Active Substance: FENTANYL\FENTANYL CITRATE
  8. MORPHINE [Suspect]
     Active Substance: MORPHINE
  9. MIDAZOLAM [Suspect]
     Active Substance: MIDAZOLAM
  10. OMEPRAZOLE [Suspect]
     Active Substance: OMEPRAZOLE
  11. ONDANSETRON [Suspect]
     Active Substance: ONDANSETRON
  12. PREGABALIN [Suspect]
     Active Substance: PREGABALIN

REACTIONS (15)
  - Psychomotor hyperactivity [None]
  - Pain [None]
  - Dyspnoea [None]
  - Dizziness [None]
  - Urine output decreased [None]
  - Anxiety [None]
  - Movement disorder [None]
  - Decreased appetite [None]
  - Asthenia [None]
  - Haematuria [None]
  - Vomiting [None]
  - Pyrexia [None]
  - Nausea [None]
  - Feeling of despair [None]
  - Drug ineffective [None]
